FAERS Safety Report 16004065 (Version 2)
Quarter: 2020Q3

REPORT INFORMATION
  Report Type: Spontaneous
  Country: GB (occurrence: GB)
  Receive Date: 20190225
  Receipt Date: 20190225
  Transmission Date: 20201105
  Serious: Yes (Other)
  Sender: FDA-Public Use
  Company Number: GB-ACCORD-108545

PATIENT
  Age: 72 Year
  Sex: Female
  Weight: 68 kg

DRUGS (6)
  1. IBANDRONIC ACID. [Suspect]
     Active Substance: IBANDRONIC ACID
     Indication: PRODUCT USED FOR UNKNOWN INDICATION
     Dates: start: 20180726
  2. CLOTRIMAZOLE. [Concomitant]
     Active Substance: CLOTRIMAZOLE
     Dosage: USE AS DIRECTED
     Dates: start: 20180626, end: 20180710
  3. KALCIPOS?D [Concomitant]
     Active Substance: CALCIUM CARBONATE\CHOLECALCIFEROL
     Dates: start: 20170307
  4. AMLODIPINE [Concomitant]
     Active Substance: AMLODIPINE BESYLATE
     Dates: start: 20170412, end: 20180726
  5. SUNVIT?D3 [Concomitant]
     Dates: start: 20170307
  6. LEVOTHYROXINE. [Concomitant]
     Active Substance: LEVOTHYROXINE
     Dosage: EACH MORNING
     Dates: start: 20170901

REACTIONS (1)
  - Gastrointestinal tract irritation [Recovered/Resolved]

NARRATIVE: CASE EVENT DATE: 20180726
